FAERS Safety Report 19429257 (Version 3)
Quarter: 2025Q1

REPORT INFORMATION
  Report Type: Spontaneous
  Country: US (occurrence: US)
  Receive Date: 20210617
  Receipt Date: 20250205
  Transmission Date: 20250408
  Serious: Yes (Other)
  Sender: PFIZER
  Company Number: US-PFIZER INC-2021657823

PATIENT
  Age: 68 Year
  Sex: Female

DRUGS (4)
  1. IBRANCE [Suspect]
     Active Substance: PALBOCICLIB
     Dates: start: 20200421
  2. IBRANCE [Suspect]
     Active Substance: PALBOCICLIB
     Dates: start: 20210501
  3. IBRANCE [Suspect]
     Active Substance: PALBOCICLIB
     Dates: start: 20210422, end: 20210604
  4. IBRANCE [Suspect]
     Active Substance: PALBOCICLIB

REACTIONS (11)
  - White blood cell count decreased [Not Recovered/Not Resolved]
  - Diarrhoea [Unknown]
  - Weight decreased [Unknown]
  - Decreased appetite [Unknown]
  - Feeling abnormal [Unknown]
  - Cough [Unknown]
  - Pyrexia [Recovered/Resolved]
  - Night sweats [Unknown]
  - Mood swings [Unknown]
  - Asthenia [Unknown]
  - Off label use [Unknown]
